FAERS Safety Report 4874211-5 (Version None)
Quarter: 2006Q1

REPORT INFORMATION
  Report Type: 
  Country: None (occurrence: None)
  Receive Date: 20060106
  Receipt Date: 20050718
  Transmission Date: 20060701
  Serious: Yes (Hospitalization, Other)
  Sender: FDA-Public Use
  Company Number: US-MERCK-0507USA03042

PATIENT
  Age: 73 Year
  Sex: Male
  Weight: 95 kg

DRUGS (7)
  1. VIOXX [Suspect]
     Indication: PAIN IN EXTREMITY
     Route: 048
     Dates: start: 20040401, end: 20040901
  2. GLYBURIDE [Concomitant]
     Route: 065
  3. NORVASC [Concomitant]
     Route: 065
  4. ZOCOR [Concomitant]
     Route: 065
  5. ACTOS [Concomitant]
     Route: 065
  6. COREG [Concomitant]
     Route: 065
  7. LASIX [Concomitant]
     Route: 065

REACTIONS (3)
  - CARDIAC DISORDER [None]
  - MYOCARDIAL INFARCTION [None]
  - RENAL FAILURE [None]
